FAERS Safety Report 7326562-2 (Version None)
Quarter: 2011Q1

REPORT INFORMATION
  Report Type: 
  Country: None (occurrence: None)
  Receive Date: 20110302
  Receipt Date: 20110223
  Transmission Date: 20110831
  Serious: Yes (Other)
  Sender: FDA-Public Use
  Company Number: JP-MERCK-1102USA03590

PATIENT
  Age: 64 Year
  Sex: Female

DRUGS (15)
  1. FLUOROURACIL [Concomitant]
     Route: 042
     Dates: start: 20081101, end: 20091001
  2. IRINOTECAN HYDROCHLORIDE [Concomitant]
     Indication: CHEMOTHERAPY
     Route: 042
     Dates: start: 20091001
  3. DICLOFENAC SODIUM [Concomitant]
     Route: 048
  4. ELPLAT [Concomitant]
     Indication: CHEMOTHERAPY
     Route: 042
     Dates: start: 20081101, end: 20091001
  5. FLUOROURACIL [Concomitant]
     Indication: CHEMOTHERAPY
     Route: 042
     Dates: start: 20081101, end: 20091001
  6. ERBITUX [Concomitant]
     Indication: CHEMOTHERAPY
     Route: 042
     Dates: start: 20100401
  7. ALPRAZOLAM [Concomitant]
     Route: 048
  8. DECADRON [Suspect]
     Indication: PROPHYLAXIS OF NAUSEA AND VOMITING
     Route: 048
     Dates: start: 20081101
  9. FLUOROURACIL [Concomitant]
     Route: 042
     Dates: start: 20091001
  10. LEVOLEUCOVORIN CALCIUM [Concomitant]
     Indication: CHEMOTHERAPY
     Route: 042
     Dates: start: 20081101, end: 20091001
  11. SENNOSIDES [Concomitant]
     Route: 048
  12. AVASTIN [Suspect]
     Indication: CHEMOTHERAPY
     Route: 042
     Dates: start: 20081101, end: 20100401
  13. LEVOLEUCOVORIN CALCIUM [Concomitant]
     Route: 042
     Dates: start: 20091001
  14. OXYCODONE HYDROCHLORIDE [Concomitant]
     Route: 048
  15. FAMOTIDINE [Concomitant]
     Route: 048

REACTIONS (2)
  - OSTEONECROSIS OF JAW [None]
  - STOMATITIS [None]
